FAERS Safety Report 4966612-1 (Version None)
Quarter: 2006Q1

REPORT INFORMATION
  Report Type: 
  Country: None (occurrence: None)
  Receive Date: 20060201
  Receipt Date: 20051209
  Transmission Date: 20060701
  Serious: No
  Sender: FDA-Public Use
  Company Number: 2005PV005750

PATIENT
  Age: 41 Year
  Sex: Male
  Weight: 176.4492 kg

DRUGS (7)
  1. BYETTA [Suspect]
     Indication: DIABETES MELLITUS NON-INSULIN-DEPENDENT
     Dosage: 10 MCG;BID;SC; 5 MCG;BID;SC
     Route: 058
     Dates: start: 20050901, end: 20051001
  2. BYETTA [Suspect]
     Indication: DIABETES MELLITUS NON-INSULIN-DEPENDENT
     Dosage: 10 MCG;BID;SC; 5 MCG;BID;SC
     Route: 058
     Dates: start: 20051001
  3. METFORMIN [Concomitant]
  4. FUROSEMIDE [Concomitant]
  5. POTASSIUM CHLORIDE [Concomitant]
  6. METOPROLOL SUCCINATE [Concomitant]
  7. DOCUSATE SODIUM [Concomitant]

REACTIONS (7)
  - BACK PAIN [None]
  - DYSPEPSIA [None]
  - HEADACHE [None]
  - INSOMNIA [None]
  - MOBILITY DECREASED [None]
  - MUSCULAR WEAKNESS [None]
  - OEDEMA PERIPHERAL [None]
